FAERS Safety Report 5072997-0 (Version None)
Quarter: 2006Q3

REPORT INFORMATION
  Report Type: 
  Country: None (occurrence: None)
  Receive Date: 20060802
  Receipt Date: 20060720
  Transmission Date: 20061208
  Serious: Yes (Hospitalization)
  Sender: FDA-Public Use
  Company Number: 2006089999

PATIENT
  Age: 26 Year
  Sex: Male
  Weight: 77 kg

DRUGS (4)
  1. AZITHROMYCIN [Suspect]
     Indication: SALMONELLOSIS
     Dosage: 1 GRAM (1 GRAM), ORAL
     Route: 048
     Dates: start: 20060509, end: 20060520
  2. PROCHLORPERAZINE MALEATE [Concomitant]
  3. CO-CODAMOL (CODEINE PHOSPHATE, PARACETAMOL) [Concomitant]
  4. LOPERAMIDE [Concomitant]

REACTIONS (2)
  - ANAEMIA HAEMOLYTIC AUTOIMMUNE [None]
  - LIVER FUNCTION TEST ABNORMAL [None]
